FAERS Safety Report 8215071-4 (Version None)
Quarter: 2012Q1

REPORT INFORMATION
  Report Type: 
  Country: None (occurrence: None)
  Receive Date: 20120316
  Receipt Date: 20120306
  Transmission Date: 20120608
  Serious: Yes (Disabling, Other)
  Sender: FDA-Public Use
  Company Number: CA-FRI-1000021754

PATIENT
  Sex: Female
  Weight: 80 kg

DRUGS (2)
  1. ROFLUMILAST [Suspect]
     Dosage: 500 MCG
     Route: 048
  2. ROFLUMILAST [Suspect]
     Indication: CHRONIC OBSTRUCTIVE PULMONARY DISEASE
     Dosage: 500 MCG
     Route: 048
     Dates: start: 20110503, end: 20110512

REACTIONS (5)
  - MUSCULAR WEAKNESS [None]
  - MONOPLEGIA [None]
  - ABASIA [None]
  - OEDEMA PERIPHERAL [None]
  - BACK PAIN [None]
